FAERS Safety Report 25853465 (Version 1)
Quarter: 2025Q3

REPORT INFORMATION
  Report Type: Spontaneous
  Country: US (occurrence: US)
  Receive Date: 20250926
  Receipt Date: 20250926
  Transmission Date: 20251020
  Serious: No
  Sender: ABBVIE
  Company Number: US-ABBVIE-6477054

PATIENT

DRUGS (1)
  1. EMRELIS [Suspect]
     Active Substance: TELISOTUZUMAB VEDOTIN-TLLV
     Indication: Product used for unknown indication
     Route: 042

REACTIONS (1)
  - Pyrexia [Not Recovered/Not Resolved]
